FAERS Safety Report 4756527-6 (Version None)
Quarter: 2005Q3

REPORT INFORMATION
  Report Type: 
  Country: None (occurrence: None)
  Receive Date: 20050830
  Receipt Date: 20050722
  Transmission Date: 20060218
  Serious: No
  Sender: FDA-Public Use
  Company Number: US-GLAXOSMITHKLINE-A0567250A

PATIENT
  Age: 69 Year
  Sex: Male

DRUGS (8)
  1. WELLBUTRIN XL [Suspect]
     Indication: DEPRESSION
     Dosage: 450MG PER DAY
     Route: 048
     Dates: start: 20040101
  2. ZOLOFT [Concomitant]
  3. NORVASC [Concomitant]
  4. DURAGESIC-100 [Concomitant]
  5. NITROGLYCERIN SPRAY [Concomitant]
  6. DIOVAN [Concomitant]
  7. LIPITOR [Concomitant]
  8. TRAZODONE [Concomitant]

REACTIONS (12)
  - ANOREXIA [None]
  - ANXIETY [None]
  - CHEST PAIN [None]
  - DIPLOPIA [None]
  - DRUG INEFFECTIVE [None]
  - DRY MOUTH [None]
  - DYSGEUSIA [None]
  - HYPERHIDROSIS [None]
  - MOOD SWINGS [None]
  - RESTLESSNESS [None]
  - TINNITUS [None]
  - WEIGHT DECREASED [None]
